FAERS Safety Report 4530431-0 (Version None)
Quarter: 2004Q4

REPORT INFORMATION
  Report Type: 
  Country: None (occurrence: None)
  Receive Date: 20041215
  Receipt Date: 20041203
  Transmission Date: 20050328
  Serious: Yes (Hospitalization)
  Sender: FDA-Public Use
  Company Number: K200401851

PATIENT
  Age: 52 Year
  Sex: Female

DRUGS (1)
  1. PREFEST(ESTRADIOL, NORGESTIMATE) TABLET [Suspect]
     Indication: HORMONE REPLACEMENT THERAPY
     Dosage: 1 TABLET, QD, ORAL
     Route: 048

REACTIONS (4)
  - BRONCHOSPASM [None]
  - EXANTHEM [None]
  - HYPERSENSITIVITY [None]
  - URTICARIA PAPULAR [None]
